FAERS Safety Report 7356968-7 (Version None)
Quarter: 2011Q1

REPORT INFORMATION
  Report Type: 
  Country: None (occurrence: None)
  Receive Date: 20110317
  Receipt Date: 20080818
  Transmission Date: 20110831
  Serious: No
  Sender: FDA-Public Use
  Company Number: 2008BI021331

PATIENT
  Age: 52 Year
  Sex: Male

DRUGS (1)
  1. TYSABRI [Suspect]
     Indication: MULTIPLE SCLEROSIS
     Route: 042
     Dates: start: 20080522

REACTIONS (8)
  - GAIT DISTURBANCE [None]
  - HYPOAESTHESIA [None]
  - BALANCE DISORDER [None]
  - AGRAPHIA [None]
  - FALL [None]
  - MOBILITY DECREASED [None]
  - HEMIPARESIS [None]
  - MULTIPLE SCLEROSIS [None]
